FAERS Safety Report 9192740 (Version 1)
Quarter: 2013Q1

REPORT INFORMATION
  Report Type: Spontaneous
  Country: US (occurrence: None)
  Receive Date: 20130325
  Receipt Date: 20130325
  Transmission Date: 20140127
  Serious: Yes (Hospitalization)
  Sender: FDA-Public Use
  Company Number: 2013AP003679

PATIENT
  Sex: Male

DRUGS (7)
  1. PREDNISOLONE (PREDNISOLONE) [Suspect]
     Indication: IMMUNOSUPPRESSION
  2. MYCOPHENOLATE MOFETIL (MYCOPHENOLATE MOFETIL) [Suspect]
     Indication: IMMUNOSUPPRESSION
  3. RITUXIMAB (RITUXIMAB) [Suspect]
     Indication: IMMUNOSUPPRESSION
  4. CYCLOPHOSPHAMIDE (CYCLOPHOSPHAMIDE) [Concomitant]
  5. PREDNISOLONE (PREDNISOLONE) [Concomitant]
  6. IMMUNOGLOBULINS (IMMUNOGLOBULINS) [Concomitant]
  7. TACROLIMUS (TACROLIMUS) [Suspect]

REACTIONS (1)
  - Progressive multifocal leukoencephalopathy [None]
